FAERS Safety Report 18057122 (Version 1)
Quarter: 2020Q3

REPORT INFORMATION
  Report Type: Spontaneous
  Country: CA (occurrence: CA)
  Receive Date: 20200722
  Receipt Date: 20200722
  Transmission Date: 20201103
  Serious: Yes (Other)
  Sender: FDA-Public Use
  Company Number: CA-TEVA-2020-CA-1803719

PATIENT
  Age: 63 Year
  Sex: Female

DRUGS (25)
  1. METFORMIN [Suspect]
     Active Substance: METFORMIN HYDROCHLORIDE
     Indication: COMPUTERISED TOMOGRAM
  2. FERROUS GLUCONATE [Concomitant]
     Active Substance: FERROUS GLUCONATE
  3. LEVOTHYROXINE. [Concomitant]
     Active Substance: LEVOTHYROXINE
  4. AMPICILLIN [Concomitant]
     Active Substance: AMPICILLIN
  5. CHOLECALCIFEROL [Concomitant]
     Active Substance: CHOLECALCIFEROL
  6. SALBUTAMOL [Concomitant]
     Active Substance: ALBUTEROL
  7. FUROSEMIDE. [Concomitant]
     Active Substance: FUROSEMIDE
  8. MAGNESIUM GLUCONATE [Concomitant]
     Active Substance: MAGNESIUM GLUCONATE
  9. SPIRIVA [Concomitant]
     Active Substance: TIOTROPIUM BROMIDE MONOHYDRATE
  10. ADVAIR HFA [Concomitant]
     Active Substance: FLUTICASONE PROPIONATE\SALMETEROL XINAFOATE
  11. ELIQUIS [Concomitant]
     Active Substance: APIXABAN
  12. SENNOSIDES. [Concomitant]
     Active Substance: SENNOSIDES
  13. AMIODARONE [Concomitant]
     Active Substance: AMIODARONE
  14. LANTUS [Concomitant]
     Active Substance: INSULIN GLARGINE
  15. PANTOPRAZOLE [Concomitant]
     Active Substance: PANTOPRAZOLE
  16. POTASSIUM [Concomitant]
     Active Substance: POTASSIUM
  17. ROSUVASTATIN. [Concomitant]
     Active Substance: ROSUVASTATIN
  18. CONTRAST MEDIA [Concomitant]
     Active Substance: UNSPECIFIED INGREDIENT
     Indication: SCAN WITH CONTRAST
  19. GABAPENTIN. [Concomitant]
     Active Substance: GABAPENTIN
  20. MUPIROCIN. [Concomitant]
     Active Substance: MUPIROCIN
  21. ASA [Concomitant]
     Active Substance: ASPIRIN
  22. CALCIUM [Concomitant]
     Active Substance: CALCIUM
  23. CYANOCOBALAMIN. [Concomitant]
     Active Substance: CYANOCOBALAMIN
  24. IRBESARTAN. [Concomitant]
     Active Substance: IRBESARTAN
  25. POLYETHYLENE GLYCOL [Concomitant]
     Active Substance: POLYETHYLENE GLYCOLS

REACTIONS (2)
  - Blood creatinine increased [Not Recovered/Not Resolved]
  - Product administration error [Not Recovered/Not Resolved]
